FAERS Safety Report 18999964 (Version 1)
Quarter: 2021Q1

REPORT INFORMATION
  Report Type: Spontaneous
  Country: CN (occurrence: CN)
  Receive Date: 20210311
  Receipt Date: 20210311
  Transmission Date: 20210420
  Serious: Yes (Other)
  Sender: FDA-Public Use
  Company Number: CN-SA-2021SA079310

PATIENT
  Age: 55 Year
  Sex: Male
  Weight: 65 kg

DRUGS (5)
  1. SODIUM CHLORIDE. [Concomitant]
     Active Substance: SODIUM CHLORIDE
     Dosage: UNK
  2. FLUOROURACIL. [Concomitant]
     Active Substance: FLUOROURACIL
     Dosage: UNK
     Dates: start: 20210210
  3. ELOXATIN [Suspect]
     Active Substance: OXALIPLATIN
     Indication: CHEMOTHERAPY
     Dosage: 150 MG, QD (WITH INITIAL INFUSION RATE OF 83 ML/H)
     Route: 041
     Dates: start: 20210210, end: 20210210
  4. ERBITUX [Concomitant]
     Active Substance: CETUXIMAB
     Dosage: UNK UNK, QD
     Dates: start: 20210210
  5. GLUCOSE [Concomitant]
     Active Substance: DEXTROSE
     Dosage: 500 ML
     Dates: start: 20210210

REACTIONS (4)
  - Pruritus [Recovering/Resolving]
  - Asphyxia [Recovering/Resolving]
  - Vomiting [Recovering/Resolving]
  - Abdominal pain [Recovering/Resolving]

NARRATIVE: CASE EVENT DATE: 20210210
